FAERS Safety Report 23622055 (Version 1)
Quarter: 2024Q1

REPORT INFORMATION
  Report Type: Spontaneous
  Country: US (occurrence: None)
  Receive Date: 20240311
  Receipt Date: 20240311
  Transmission Date: 20240409
  Serious: No
  Sender: FDA-Public Use
  Company Number: None

PATIENT
  Age: 55 Year
  Sex: Male
  Weight: 74.8 kg

DRUGS (5)
  1. XOLAIR [Suspect]
     Active Substance: OMALIZUMAB
     Indication: Urticaria
     Dosage: OTHER FREQUENCY : MONTHLY;?
     Route: 058
     Dates: start: 20231121
  2. Hydroxyzine 25 mg tablets [Concomitant]
     Dates: start: 20240201
  3. Levocetirizine 5 mg tablets [Concomitant]
     Dates: start: 20230815
  4. PREDNISONE [Concomitant]
     Active Substance: PREDNISONE
     Dates: start: 20240212
  5. Propranolol 20 mg tablets [Concomitant]
     Dates: start: 20231124

REACTIONS (2)
  - Pruritus [None]
  - Therapy change [None]

NARRATIVE: CASE EVENT DATE: 20240304
